FAERS Safety Report 9287075 (Version 1)
Quarter: 2013Q2

REPORT INFORMATION
  Report Type: Spontaneous
  Country: MK (occurrence: MK)
  Receive Date: 20130513
  Receipt Date: 20130513
  Transmission Date: 20140414
  Serious: Yes (Other)
  Sender: FDA-Public Use
  Company Number: MK-BAXTER-2012BAX007188

PATIENT
  Age: 11 Year
  Sex: Male

DRUGS (1)
  1. KIOVIG RASTVOR ZA INFUZIJU 5G/ 50 ML [Suspect]
     Indication: BRUTON^S AGAMMAGLOBULINAEMIA
     Route: 042
     Dates: start: 20120530

REACTIONS (4)
  - Chest pain [Recovered/Resolved]
  - Nausea [Recovered/Resolved]
  - Vomiting [Recovered/Resolved]
  - Vertigo [Recovered/Resolved]
